FAERS Safety Report 16979452 (Version 1)
Quarter: 2019Q4

REPORT INFORMATION
  Report Type: Spontaneous
  Country: CN (occurrence: CN)
  Receive Date: 20191031
  Receipt Date: 20191031
  Transmission Date: 20200122
  Serious: Yes (Other)
  Sender: FDA-Public Use
  Company Number: CN-ASTRAZENECA-2019SF52714

PATIENT
  Age: 43 Year
  Sex: Male
  Weight: 65 kg

DRUGS (4)
  1. NEXIUM [Suspect]
     Active Substance: ESOMEPRAZOLE MAGNESIUM
     Indication: HELICOBACTER INFECTION
     Route: 048
     Dates: start: 20190929, end: 20191002
  2. AMOXICILLIN. [Suspect]
     Active Substance: AMOXICILLIN
     Indication: HELICOBACTER INFECTION
     Route: 048
     Dates: start: 20190929, end: 20191002
  3. COLLOIDAL BISMUTH PECTIN [Suspect]
     Active Substance: BISMUTH
     Indication: HELICOBACTER INFECTION
     Route: 048
     Dates: start: 20190929, end: 20191002
  4. NUOBANG (CLARITHROMYCIN) [Suspect]
     Active Substance: CLARITHROMYCIN
     Indication: HELICOBACTER INFECTION
     Route: 048
     Dates: start: 20190929, end: 20191002

REACTIONS (3)
  - Diarrhoea [Recovering/Resolving]
  - Tremor [Recovering/Resolving]
  - Cold sweat [Recovering/Resolving]

NARRATIVE: CASE EVENT DATE: 20191001
